FAERS Safety Report 10720448 (Version 1)
Quarter: 2015Q1

REPORT INFORMATION
  Report Type: Spontaneous
  Country: CH (occurrence: CH)
  Receive Date: 20150119
  Receipt Date: 20150119
  Transmission Date: 20150721
  Serious: Yes (Hospitalization)
  Sender: FDA-Public Use
  Company Number: CH-ABBVIE-14P-151-1280536-00

PATIENT
  Age: 69 Year
  Sex: Male
  Weight: 58 kg

DRUGS (1)
  1. DUODOPA [Suspect]
     Active Substance: CARBIDOPA\LEVODOPA
     Indication: PARKINSON^S DISEASE
     Dosage: 24 HOUR THERAPY
     Route: 050
     Dates: start: 201203

REACTIONS (6)
  - Device breakage [Unknown]
  - Pyrexia [Recovering/Resolving]
  - Stoma site pain [Unknown]
  - Device occlusion [Unknown]
  - Excessive granulation tissue [Unknown]
  - Device leakage [Unknown]

NARRATIVE: CASE EVENT DATE: 20140829
